FAERS Safety Report 9079912 (Version 1)
Quarter: 2013Q1

REPORT INFORMATION
  Report Type: Report from Study
  Country: US (occurrence: US)
  Receive Date: 20130130
  Receipt Date: 20130130
  Transmission Date: 20140127
  Serious: No
  Sender: FDA-Public Use
  Company Number: US-ABBOTT-12P-163-0972524-00

PATIENT
  Sex: Female

DRUGS (4)
  1. HUMIRA [Suspect]
     Indication: PRODUCT USED FOR UNKNOWN INDICATION
     Route: 058
     Dates: start: 20090622, end: 201203
  2. HUMIRA [Suspect]
  3. RIFAMPIN [Suspect]
     Indication: MYCOBACTERIUM TUBERCULOSIS COMPLEX TEST POSITIVE
  4. UNKNOWN CHOLESTEROL MEDICATION [Concomitant]
     Indication: PRODUCT USED FOR UNKNOWN INDICATION

REACTIONS (3)
  - Mycobacterium tuberculosis complex test positive [Unknown]
  - Liver disorder [Unknown]
  - Diarrhoea [Unknown]
